FAERS Safety Report 9540474 (Version 1)
Quarter: 2013Q3

REPORT INFORMATION
  Report Type: Spontaneous
  Country: US (occurrence: US)
  Receive Date: 20130920
  Receipt Date: 20130920
  Transmission Date: 20140515
  Serious: Yes (Other)
  Sender: FDA-Public Use
  Company Number: US-ELI_LILLY_AND_COMPANY-US201309002892

PATIENT
  Sex: Female

DRUGS (14)
  1. INSULIN HUMAN [Suspect]
     Indication: DIABETES MELLITUS
     Dosage: UNK, OTHER
  2. HUMULIN NPH [Suspect]
     Indication: DIABETES MELLITUS
     Dosage: UNK UNK, OTHER
  3. ZOCOR [Concomitant]
  4. BUMEX [Concomitant]
  5. CALCIUM [Concomitant]
  6. ALDACTONE                          /00006201/ [Concomitant]
  7. VOLTAREN                           /00372301/ [Concomitant]
     Dosage: UNK, PRN
  8. SYSTANE [Concomitant]
  9. FENTANYL [Concomitant]
  10. MORPHINE [Concomitant]
  11. BACLOFEN [Concomitant]
  12. CATAPRES                           /00171101/ [Concomitant]
  13. TRENTAL [Concomitant]
  14. BENTYL [Concomitant]

REACTIONS (6)
  - Non-Hodgkin^s lymphoma [Unknown]
  - Blood glucose increased [Unknown]
  - Dysphonia [Not Recovered/Not Resolved]
  - Fibromyalgia [Unknown]
  - Intervertebral disc degeneration [Unknown]
  - Neuropathy peripheral [Unknown]
